FAERS Safety Report 4880790-4 (Version None)
Quarter: 2006Q1

REPORT INFORMATION
  Report Type: 
  Country: None (occurrence: None)
  Receive Date: 20060111
  Receipt Date: 20050415
  Transmission Date: 20060701
  Serious: No
  Sender: FDA-Public Use
  Company Number: 2005S1000068

PATIENT
  Age: 76 Year
  Weight: 100.9 kg

DRUGS (6)
  1. CUBICIN [Suspect]
     Indication: STAPHYLOCOCCAL INFECTION
     Dosage: 400 MG;Q48H;IV
     Route: 042
     Dates: start: 20050325, end: 20050417
  2. COUMADIN [Concomitant]
  3. HYTRIN [Concomitant]
  4. NEURONTIN [Concomitant]
  5. CELEBREX [Concomitant]
  6. VICODIN [Concomitant]

REACTIONS (2)
  - ANAEMIA [None]
  - FATIGUE [None]
